FAERS Safety Report 5427342-5 (Version None)
Quarter: 2007Q3

REPORT INFORMATION
  Report Type: 
  Country: None (occurrence: None)
  Receive Date: 20070828
  Receipt Date: 20070817
  Transmission Date: 20080115
  Serious: Yes (Hospitalization)
  Sender: FDA-Public Use
  Company Number: FR-JNJFOC-20070804073

PATIENT
  Age: 46 Year
  Sex: Male
  Weight: 63 kg

DRUGS (12)
  1. REMICADE [Suspect]
     Route: 042
  2. REMICADE [Suspect]
     Route: 042
  3. REMICADE [Suspect]
     Route: 042
  4. REMICADE [Suspect]
     Route: 042
  5. REMICADE [Suspect]
     Indication: BEHCET'S SYNDROME
     Route: 042
  6. CELLCEPT [Suspect]
     Indication: BEHCET'S SYNDROME
     Route: 048
  7. CORTANCYL [Suspect]
     Indication: BEHCET'S SYNDROME
  8. FOSAMAX [Suspect]
     Indication: BEHCET'S SYNDROME
     Route: 048
  9. AZATHIOPRINE SODIUM [Concomitant]
  10. INIPOMP [Concomitant]
  11. COLCHICIN [Concomitant]
  12. ASPIRIN [Concomitant]

REACTIONS (4)
  - APHTHOUS STOMATITIS [None]
  - CRYPTOCOCCOSIS [None]
  - LYMPHOPENIA [None]
  - OTITIS MEDIA [None]
